FAERS Safety Report 5037526-6 (Version None)
Quarter: 2006Q2

REPORT INFORMATION
  Report Type: 
  Country: None (occurrence: None)
  Receive Date: 20060628
  Receipt Date: 20031114
  Transmission Date: 20061013
  Serious: No
  Sender: FDA-Public Use
  Company Number: CA-BRISTOL-MYERS SQUIBB COMPANY-12437034

PATIENT
  Age: 31 Year
  Sex: Female

DRUGS (1)
  1. SERZONE [Suspect]
     Route: 048

REACTIONS (2)
  - ECZEMA [None]
  - HEPATITIS FULMINANT [None]
